FAERS Safety Report 8552304-9 (Version None)
Quarter: 2012Q3

REPORT INFORMATION
  Report Type: 
  Country: None (occurrence: None)
  Receive Date: 20120718
  Receipt Date: 20120702
  Transmission Date: 20120928
  Serious: Yes (Hospitalization, Other)
  Sender: FDA-Public Use
  Company Number: 2012MA008188

PATIENT
  Age: 68 Year
  Sex: Female

DRUGS (5)
  1. WARFARIN [Concomitant]
  2. SOTALOL HYDROCHLORIDE [Concomitant]
  3. ENALAPRIL MALEATE [Concomitant]
  4. METHIMAZOLE [Concomitant]
  5. PROPYL-THIOURACIL [Suspect]
     Indication: HYPERTHYROIDISM
     Dosage: 150 MG;QD;UNK

REACTIONS (4)
  - TACHYCARDIA [None]
  - ORGANISING PNEUMONIA [None]
  - INTERSTITIAL LUNG DISEASE [None]
  - SUPRAVENTRICULAR EXTRASYSTOLES [None]
